FAERS Safety Report 5430750-X (Version None)
Quarter: 2007Q3

REPORT INFORMATION
  Report Type: 
  Country: None (occurrence: None)
  Receive Date: 20070830
  Receipt Date: 20061109
  Transmission Date: 20080115
  Serious: No
  Sender: FDA-Public Use
  Company Number: A0626877A

PATIENT
  Sex: Male

DRUGS (1)
  1. WELLBUTRIN XL [Suspect]
     Dosage: 150MG PER DAY
     Route: 048
     Dates: start: 20061102

REACTIONS (2)
  - INSOMNIA [None]
  - PSYCHOMOTOR HYPERACTIVITY [None]
